FAERS Safety Report 6741839-7 (Version None)
Quarter: 2010Q2

REPORT INFORMATION
  Report Type: 
  Country: None (occurrence: None)
  Receive Date: 20100526
  Receipt Date: 20100519
  Transmission Date: 20101027
  Serious: Yes (Hospitalization)
  Sender: FDA-Public Use
  Company Number: A0783340A

PATIENT
  Age: 71 Year
  Sex: Male
  Weight: 107 kg

DRUGS (10)
  1. AVANDIA [Suspect]
     Indication: DIABETES MELLITUS
     Dosage: 8MG PER DAY
     Route: 048
     Dates: start: 20050101, end: 20070401
  2. PLAVIX [Concomitant]
  3. ARICEPT [Concomitant]
  4. ALTACE [Concomitant]
  5. ATENOL + CHLORTHALIDONE [Concomitant]
  6. ANTARA (MICRONIZED) [Concomitant]
  7. BONIVA [Concomitant]
  8. ZOCOR [Concomitant]
  9. VITAMINS [Concomitant]
  10. ASPIRIN [Concomitant]

REACTIONS (2)
  - CORONARY ARTERY DISEASE [None]
  - MYOCARDIAL INFARCTION [None]
